FAERS Safety Report 10551124 (Version 2)
Quarter: 2014Q4

REPORT INFORMATION
  Report Type: Spontaneous
  Country: FR (occurrence: FR)
  Receive Date: 20141029
  Receipt Date: 20141212
  Transmission Date: 20150529
  Serious: Yes (Hospitalization)
  Sender: FDA-Public Use
  Company Number: FR-MERZ NORTH AMERICA, INC.-14MRZ-00382

PATIENT
  Sex: Female

DRUGS (1)
  1. XEOMIN [Suspect]
     Active Substance: INCOBOTULINUMTOXINA
     Indication: DYSMENORRHOEA
     Dosage: 100 IU, 1 IN 1 TOTAL
     Dates: start: 201407, end: 201407

REACTIONS (7)
  - Myelopathy [None]
  - Inflammation [None]
  - Monoparesis [None]
  - Off label use [None]
  - Dysaesthesia [None]
  - Hyperaesthesia [None]
  - Spinal cord injury [None]
